FAERS Safety Report 26128225 (Version 1)
Quarter: 2025Q4

REPORT INFORMATION
  Report Type: Spontaneous
  Country: CA (occurrence: CA)
  Receive Date: 20251207
  Receipt Date: 20251207
  Transmission Date: 20260118
  Serious: Yes (Other)
  Sender: AUROBINDO
  Company Number: CA-AUROBINDO-AUR-APL-2025-061223

PATIENT
  Age: 77 Year
  Sex: Male

DRUGS (1)
  1. IRINOTECAN [Suspect]
     Active Substance: IRINOTECAN
     Indication: Product used for unknown indication
     Dosage: 304 MILLIGRAM, UNK

REACTIONS (4)
  - Dizziness [Unknown]
  - Throat irritation [Unknown]
  - Dysarthria [Unknown]
  - Lip swelling [Unknown]
